FAERS Safety Report 13148527 (Version 5)
Quarter: 2017Q2

REPORT INFORMATION
  Report Type: Report from Study
  Country: JP (occurrence: JP)
  Receive Date: 20170125
  Receipt Date: 20170628
  Transmission Date: 20170830
  Serious: Yes (Other)
  Sender: FDA-Public Use
  Company Number: JP-VIFOR (INTERNATIONAL) INC.-VIT-2017-00500

PATIENT
  Age: 63 Year
  Sex: Male
  Weight: 69.6 kg

DRUGS (16)
  1. VELPHORO [Suspect]
     Active Substance: FERRIC OXYHYDROXIDE
     Route: 048
     Dates: start: 20160705, end: 20160923
  2. REBAMIPIDE [Concomitant]
     Active Substance: REBAMIPIDE
     Indication: GASTRITIS PROPHYLAXIS
     Route: 048
  3. SUPLATAST TOSILATE [Concomitant]
     Active Substance: SUPLATAST TOSILATE
     Route: 048
  4. LYRICA [Concomitant]
     Active Substance: PREGABALIN
     Route: 048
     Dates: start: 20160507
  5. PREDNISOLONE. [Concomitant]
     Active Substance: PREDNISOLONE
     Route: 048
  6. NEXIUM [Concomitant]
     Active Substance: ESOMEPRAZOLE MAGNESIUM
     Indication: GASTRITIS PROPHYLAXIS
     Route: 048
  7. LOXOPROFEN SODIUM [Concomitant]
     Active Substance: LOXOPROFEN SODIUM
     Route: 048
     Dates: start: 20160528, end: 20160816
  8. L CARTIN [Suspect]
     Active Substance: LEVOCARNITINE HYDROCHLORIDE
     Dates: start: 20160510, end: 20160908
  9. EPOETIN ALFA BS [Suspect]
     Active Substance: ERYTHROPOIETIN
     Dates: start: 20160707, end: 20160802
  10. ALFACALCIDOL [Concomitant]
     Active Substance: ALFACALCIDOL
     Route: 048
  11. EPOGIN [Concomitant]
     Active Substance: ERYTHROPOIETIN
     Dates: start: 20160510, end: 20160705
  12. VELPHORO [Suspect]
     Active Substance: FERRIC OXYHYDROXIDE
     Indication: HYPERPHOSPHATAEMIA
     Route: 048
     Dates: start: 20160614, end: 20160704
  13. EPOETIN ALFA BS [Suspect]
     Active Substance: ERYTHROPOIETIN
     Dates: start: 20160804, end: 20160818
  14. VELPHORO [Suspect]
     Active Substance: FERRIC OXYHYDROXIDE
     Route: 048
     Dates: start: 20160924
  15. TALION [Concomitant]
     Active Substance: BEPOTASTINE
     Route: 048
     Dates: start: 20160610
  16. FORTEO [Concomitant]
     Active Substance: TERIPARATIDE
     Dates: start: 20160109

REACTIONS (3)
  - Red blood cell count increased [Recovering/Resolving]
  - Haematocrit increased [Recovering/Resolving]
  - Haemoglobin increased [Recovering/Resolving]

NARRATIVE: CASE EVENT DATE: 20160906
